FAERS Safety Report 22103742 (Version 2)
Quarter: 2023Q1

REPORT INFORMATION
  Report Type: Spontaneous
  Country: JP (occurrence: JP)
  Receive Date: 20230316
  Receipt Date: 20230329
  Transmission Date: 20230417
  Serious: Yes (Death, Hospitalization, Other)
  Sender: FDA-Public Use
  Company Number: JP-UCBJ-CD202302653UCBPHAPROD

PATIENT
  Age: 88 Year
  Sex: Male

DRUGS (2)
  1. LEVETIRACETAM [Suspect]
     Active Substance: LEVETIRACETAM
     Indication: Partial seizures
     Dosage: 500 MILLIGRAM, 2X/DAY (BID), EVERY 12 HOURS
     Route: 048
     Dates: start: 20210710, end: 20220608
  2. LEVETIRACETAM [Suspect]
     Active Substance: LEVETIRACETAM
     Indication: Partial seizures

REACTIONS (2)
  - Aplastic anaemia [Fatal]
  - Myelodysplastic syndrome [Unknown]

NARRATIVE: CASE EVENT DATE: 20220608
